FAERS Safety Report 21371568 (Version 1)
Quarter: 2022Q3

REPORT INFORMATION
  Report Type: Spontaneous
  Country: CN (occurrence: CN)
  Receive Date: 20220923
  Receipt Date: 20220923
  Transmission Date: 20221027
  Serious: Yes (Hospitalization, Other)
  Sender: FDA-Public Use
  Company Number: CN-PFIZER INC-PV202200068347

PATIENT
  Age: 45 Year
  Sex: Male
  Weight: 59 kg

DRUGS (8)
  1. CYTARABINE [Suspect]
     Active Substance: CYTARABINE
     Indication: Burkitt^s lymphoma
     Dosage: 4.5 G, 2X/DAY
     Route: 041
     Dates: start: 20220825, end: 20220827
  2. METHOTREXATE SODIUM [Suspect]
     Active Substance: METHOTREXATE SODIUM
     Indication: Burkitt^s lymphoma
     Dosage: 1300 MG, 1X/DAY
     Route: 041
     Dates: start: 20220824, end: 20220825
  3. METHOTREXATE SODIUM [Suspect]
     Active Substance: METHOTREXATE SODIUM
     Indication: Burkitt^s lymphoma
     Dosage: 300 MG, 1X/DAY
     Route: 041
     Dates: start: 20220824, end: 20220825
  4. RITUXIMAB [Concomitant]
     Active Substance: RITUXIMAB
     Indication: Burkitt^s lymphoma
     Dosage: 1000 MG, 1X/DAY
     Route: 041
     Dates: start: 20220823, end: 20220824
  5. RITUXIMAB [Concomitant]
     Active Substance: RITUXIMAB
     Indication: Burkitt^s lymphoma
     Dosage: 500 MG, 1X/DAY
     Route: 041
     Dates: start: 20220823, end: 20220824
  6. DEXAMETHASONE SODIUM PHOSPHATE [Concomitant]
     Active Substance: DEXAMETHASONE SODIUM PHOSPHATE
     Indication: Antiallergic therapy
     Dosage: 10 MG, 1X/DAY
     Route: 041
     Dates: start: 20220823, end: 20220824
  7. LEUCOVORIN CALCIUM [Concomitant]
     Active Substance: LEUCOVORIN CALCIUM
     Indication: Detoxification
     Dosage: 30 MG, 4X/DAY
     Route: 030
     Dates: start: 20220825, end: 20220909
  8. PROMETHAZINE HYDROCHLORIDE [Concomitant]
     Active Substance: PROMETHAZINE HYDROCHLORIDE
     Indication: Antiallergic therapy
     Dosage: 25 MG, 1X/DAY
     Route: 030
     Dates: start: 20220823, end: 20220824

REACTIONS (11)
  - Renal failure [Recovering/Resolving]
  - Ataxia [Recovering/Resolving]
  - Dysarthria [Unknown]
  - Gait disturbance [Unknown]
  - Dyskinesia [Unknown]
  - Drug level increased [Recovering/Resolving]
  - Abdominal discomfort [Unknown]
  - Diarrhoea [Unknown]
  - Oral mucosal erythema [Unknown]
  - Pharyngeal erosion [Unknown]
  - Mucosal erosion [Unknown]

NARRATIVE: CASE EVENT DATE: 20220101
